FAERS Safety Report 9069195 (Version 1)
Quarter: 2013Q1

REPORT INFORMATION
  Report Type: Report from Study
  Country: US (occurrence: US)
  Receive Date: 20130131
  Receipt Date: 20130131
  Transmission Date: 20140127
  Serious: No
  Sender: FDA-Public Use
  Company Number: US-ABBOTT-12P-163-1000544-00

PATIENT
  Age: 71 Year
  Sex: Female

DRUGS (5)
  1. HUMIRA [Suspect]
     Indication: RHEUMATOID ARTHRITIS
     Dates: start: 20120424
  2. PREMARIN [Concomitant]
     Indication: PRODUCT USED FOR UNKNOWN INDICATION
  3. DIOVAN [Concomitant]
     Indication: BLOOD PRESSURE
  4. VERAPAMIL [Concomitant]
     Indication: BLOOD PRESSURE
  5. OMEPRAZOLE [Concomitant]
     Indication: GASTRIC DISORDER

REACTIONS (4)
  - Anaemia [Unknown]
  - Endodontic procedure [Unknown]
  - Endodontic procedure [Unknown]
  - Injection site pain [Unknown]
